FAERS Safety Report 17961119 (Version 1)
Quarter: 2020Q2

REPORT INFORMATION
  Report Type: Spontaneous
  Country: US (occurrence: US)
  Receive Date: 20200629
  Receipt Date: 20200629
  Transmission Date: 20200714
  Serious: Yes (Other)
  Sender: FDA-Public Use
  Company Number: None

PATIENT
  Age: 72 Year
  Sex: Female
  Weight: 70 kg

DRUGS (13)
  1. AZITHROMYCIN 500MG IV DAILY [Concomitant]
     Dates: start: 20200626
  2. CHOLECALCIFEROL 1000 UNIT PO DAILY [Concomitant]
  3. ZINC 220MG PO Q12H [Concomitant]
  4. CEFTRIAXONE 2G IV DAILY [Concomitant]
  5. DEXAMETHASONE 6MG IV DAILY [Concomitant]
     Dates: start: 20200626
  6. DOCUSATE/SENNA 50-8.6MG 2 TAB PO QHS [Concomitant]
  7. HEPARIN 5000 UNIT Q8H [Concomitant]
  8. INSULIN LISPRO SLIDING SCALE SUBQ Q4H [Concomitant]
  9. REMDESIVIR. [Suspect]
     Active Substance: REMDESIVIR
     Indication: COVID-19
     Route: 040
     Dates: start: 20200627, end: 20200629
  10. ALBUTEROL/IPRATROPIUM NEBULIZER Q6H [Concomitant]
     Dates: start: 20200628
  11. ASCORBIC ACID 500MG PO DAILY [Concomitant]
     Dates: start: 20200627
  12. INSULIN GLARGINE 30 UNIT SUBQ QHS [Concomitant]
  13. PANTOPRAZOLE 40MG IV DAILY [Concomitant]

REACTIONS (4)
  - Renal impairment [None]
  - Glomerular filtration rate decreased [None]
  - Hepatic enzyme increased [None]
  - Therapy cessation [None]

NARRATIVE: CASE EVENT DATE: 20200629
